FAERS Safety Report 10671785 (Version 2)
Quarter: 2015Q1

REPORT INFORMATION
  Report Type: Spontaneous
  Country: US (occurrence: US)
  Receive Date: 20141223
  Receipt Date: 20150120
  Transmission Date: 20150720
  Serious: Yes (Death, Hospitalization)
  Sender: FDA-Public Use
  Company Number: US-CUBIST PHARMACEUTICALS, INC.-2014CBST001691

PATIENT

DRUGS (40)
  1. CUBICIN [Suspect]
     Active Substance: DAPTOMYCIN
     Indication: PREOPERATIVE CARE
     Dosage: 480 MG, Q48H
     Route: 042
     Dates: start: 20140629, end: 20140629
  2. CUBICIN [Suspect]
     Active Substance: DAPTOMYCIN
     Dosage: 6.1 MG/KG, Q24H
     Route: 042
     Dates: start: 20140720, end: 20140723
  3. AZITHROMYCIN [Concomitant]
     Active Substance: AZITHROMYCIN ANHYDROUS
     Indication: PREOPERATIVE CARE
  4. LEVOFLOXACIN. [Concomitant]
     Active Substance: LEVOFLOXACIN
     Indication: PREOPERATIVE CARE
  5. CEFEPIME [Concomitant]
     Active Substance: CEFEPIME\CEFEPIME HYDROCHLORIDE
     Indication: ANTIBIOTIC PROPHYLAXIS
     Dosage: UNK UNK, UNK
     Route: 065
     Dates: start: 201407
  6. FLUCONAZOLE. [Concomitant]
     Active Substance: FLUCONAZOLE
     Indication: PREOPERATIVE CARE
  7. LINEZOLID. [Concomitant]
     Active Substance: LINEZOLID
     Indication: PREOPERATIVE CARE
  8. METRONIDAZOLE. [Concomitant]
     Active Substance: METRONIDAZOLE
     Indication: ANTIBIOTIC PROPHYLAXIS
     Dosage: UNK UNK, UNK
     Route: 065
     Dates: start: 201408, end: 201408
  9. CUBICIN [Suspect]
     Active Substance: DAPTOMYCIN
     Dosage: 650 MG, Q24H
     Route: 042
     Dates: start: 20140807, end: 20140811
  10. CLINDAMYCIN [Concomitant]
     Active Substance: CLINDAMYCIN\CLINDAMYCIN PHOSPHATE
     Indication: PREOPERATIVE CARE
  11. SULFAMETHOXAZOLE AND TRIMETHOPRIM [Concomitant]
     Active Substance: SULFAMETHOXAZOLE\TRIMETHOPRIM
     Indication: PREOPERATIVE CARE
  12. METRONIDAZOLE. [Concomitant]
     Active Substance: METRONIDAZOLE
     Indication: PREOPERATIVE CARE
  13. TOBRAMYCIN. [Concomitant]
     Active Substance: TOBRAMYCIN
     Indication: PREOPERATIVE CARE
  14. CUBICIN [Suspect]
     Active Substance: DAPTOMYCIN
     Dosage: 6.4 MG/KG, Q24H
     Route: 042
     Dates: start: 20140807, end: 20140811
  15. CEFTRIAXONE. [Concomitant]
     Active Substance: CEFTRIAXONE
     Indication: ANTIBIOTIC PROPHYLAXIS
     Dosage: UNK UNK, UNK
     Route: 065
     Dates: start: 201405, end: 201406
  16. CEFEPIME [Concomitant]
     Active Substance: CEFEPIME\CEFEPIME HYDROCHLORIDE
     Indication: PREOPERATIVE CARE
  17. CIPROFLOXACIN. [Concomitant]
     Active Substance: CIPROFLOXACIN
     Indication: ANTIBIOTIC PROPHYLAXIS
     Dosage: UNK UNK, UNK
     Route: 065
     Dates: start: 201408, end: 201408
  18. CIPROFLOXACIN. [Concomitant]
     Active Substance: CIPROFLOXACIN
     Indication: PREOPERATIVE CARE
  19. LINEZOLID. [Concomitant]
     Active Substance: LINEZOLID
     Indication: ANTIBIOTIC PROPHYLAXIS
     Dosage: UNK UNK, UNK
     Route: 065
     Dates: start: 201408
  20. CUBICIN [Suspect]
     Active Substance: DAPTOMYCIN
     Indication: ENTEROCOCCAL BACTERAEMIA
     Dosage: 7.2 MG/KG, Q24H
     Route: 042
     Dates: start: 20140702, end: 20140717
  21. AZITHROMYCIN [Concomitant]
     Active Substance: AZITHROMYCIN ANHYDROUS
     Indication: ANTIBIOTIC PROPHYLAXIS
     Dosage: UNK UNK, UNK
     Route: 065
     Dates: start: 201405, end: 201406
  22. GANCICLOVIR. [Concomitant]
     Active Substance: GANCICLOVIR
     Indication: PREOPERATIVE CARE
  23. CUBICIN [Suspect]
     Active Substance: DAPTOMYCIN
     Indication: ANTIBIOTIC PROPHYLAXIS
     Dosage: 4.7 MG/KG, Q48H
     Route: 042
     Dates: start: 20140629, end: 20140629
  24. CUBICIN [Suspect]
     Active Substance: DAPTOMYCIN
     Dosage: 625 MG, Q24H
     Route: 042
     Dates: start: 20140720, end: 20140723
  25. CLINDAMYCIN [Concomitant]
     Active Substance: CLINDAMYCIN\CLINDAMYCIN PHOSPHATE
     Indication: ANTIBIOTIC PROPHYLAXIS
     Dosage: UNK UNK, UNK
     Route: 065
     Dates: start: 201403, end: 201407
  26. LEVOFLOXACIN. [Concomitant]
     Active Substance: LEVOFLOXACIN
     Indication: ANTIBIOTIC PROPHYLAXIS
     Dosage: UNK UNK, UNK
     Route: 065
     Dates: start: 201406
  27. MICAFUNGIN [Concomitant]
     Active Substance: MICAFUNGIN
     Indication: PREOPERATIVE CARE
  28. SULFAMETHOXAZOLE AND TRIMETHOPRIM [Concomitant]
     Active Substance: SULFAMETHOXAZOLE\TRIMETHOPRIM
     Indication: ANTIBIOTIC PROPHYLAXIS
     Dosage: UNK UNK, UNK
     Route: 065
     Dates: start: 201407, end: 201407
  29. MEROPENEM. [Concomitant]
     Active Substance: MEROPENEM
     Indication: ANTIBIOTIC PROPHYLAXIS
     Dosage: UNK UNK, UNK
     Route: 065
     Dates: start: 201408, end: 201408
  30. MEROPENEM. [Concomitant]
     Active Substance: MEROPENEM
     Indication: PREOPERATIVE CARE
  31. TOBRAMYCIN. [Concomitant]
     Active Substance: TOBRAMYCIN
     Indication: ANTIBIOTIC PROPHYLAXIS
     Dosage: UNK UNK, UNK
     Route: 065
     Dates: start: 201408, end: 201408
  32. CUBICIN [Suspect]
     Active Substance: DAPTOMYCIN
     Indication: OFF LABEL USE
     Dosage: 730 MG, Q24H
     Route: 042
     Dates: start: 20140702, end: 20140717
  33. CEFTRIAXONE. [Concomitant]
     Active Substance: CEFTRIAXONE
     Indication: PREOPERATIVE CARE
  34. MICAFUNGIN [Concomitant]
     Active Substance: MICAFUNGIN
     Indication: ANTIBIOTIC PROPHYLAXIS
     Dosage: UNK UNK, UNK
     Route: 065
     Dates: start: 201406, end: 201407
  35. CEFAZOLIN [Concomitant]
     Active Substance: CEFAZOLIN
     Indication: ANTIBIOTIC PROPHYLAXIS
     Dosage: UNK UNK, UNK
     Route: 065
     Dates: start: 201407, end: 201407
  36. FLUCONAZOLE. [Concomitant]
     Active Substance: FLUCONAZOLE
     Indication: ANTIBIOTIC PROPHYLAXIS
     Dosage: UNK UNK, UNK
     Route: 065
     Dates: start: 201407
  37. CUBICIN [Suspect]
     Active Substance: DAPTOMYCIN
     Dosage: 6.3 MG/KG, Q24H
     Route: 042
     Dates: start: 20140804, end: 20140807
  38. CUBICIN [Suspect]
     Active Substance: DAPTOMYCIN
     Dosage: 640 MG, Q24H
     Route: 042
     Dates: start: 20140804, end: 20140807
  39. CEFAZOLIN [Concomitant]
     Active Substance: CEFAZOLIN
     Indication: PREOPERATIVE CARE
  40. GANCICLOVIR. [Concomitant]
     Active Substance: GANCICLOVIR
     Indication: ANTIBIOTIC PROPHYLAXIS
     Dosage: UNK UNK, UNK
     Route: 065
     Dates: start: 201407, end: 201408

REACTIONS (3)
  - Antimicrobial susceptibility test resistant [Fatal]
  - Enterococcal bacteraemia [Fatal]
  - Off label use [Unknown]
